FAERS Safety Report 9237347 (Version 1)
Quarter: 2013Q2

REPORT INFORMATION
  Report Type: Spontaneous
  Country: US (occurrence: US)
  Receive Date: 20130417
  Receipt Date: 20130417
  Transmission Date: 20140414
  Serious: No
  Sender: FDA-Public Use
  Company Number: US-BAYER-2013-048237

PATIENT
  Age: 31 Year
  Sex: Female

DRUGS (1)
  1. FINACEA [Suspect]

REACTIONS (2)
  - Facial pain [None]
  - Burning sensation [None]
